FAERS Safety Report 6129586-6 (Version None)
Quarter: 2009Q1

REPORT INFORMATION
  Report Type: 
  Country: None (occurrence: None)
  Receive Date: 20090324
  Receipt Date: 20090106
  Transmission Date: 20090719
  Serious: No
  Sender: FDA-Public Use
  Company Number: A0762348A

PATIENT
  Age: 56 Year
  Sex: Female

DRUGS (6)
  1. AVANDARYL [Suspect]
     Dosage: 1TAB TWICE PER DAY
     Route: 048
     Dates: start: 20080101
  2. LANTUS [Concomitant]
  3. COREG [Concomitant]
  4. DIOVAN [Concomitant]
  5. PRAVASTATIN [Concomitant]
  6. ASPIRIN [Concomitant]

REACTIONS (1)
  - WEIGHT INCREASED [None]
